FAERS Safety Report 21363596 (Version 2)
Quarter: 2022Q4

REPORT INFORMATION
  Report Type: Spontaneous
  Country: US (occurrence: US)
  Receive Date: 20220922
  Receipt Date: 20221228
  Transmission Date: 20230112
  Serious: Yes (Other)
  Sender: FDA-Public Use
  Company Number: US-CIPLA (EU) LIMITED-2022US05587

PATIENT
  Sex: Female

DRUGS (2)
  1. ALBUTEROL\IPRATROPIUM [Suspect]
     Active Substance: ALBUTEROL\IPRATROPIUM
     Indication: Chronic obstructive pulmonary disease
     Dosage: UNK, 0.5-3MG/3ML-60 VIALS PER CARTON/5 VIALS PER FOIL POUCH
     Route: 065
     Dates: start: 20220908, end: 20220912
  2. SPIRIVA [Concomitant]
     Active Substance: TIOTROPIUM BROMIDE MONOHYDRATE
     Indication: Chronic obstructive pulmonary disease
     Dosage: UNK, TID
     Route: 065

REACTIONS (4)
  - Choking [Unknown]
  - Sensation of foreign body [Unknown]
  - Feeding disorder [Unknown]
  - Device delivery system issue [Unknown]

NARRATIVE: CASE EVENT DATE: 20220908
